FAERS Safety Report 5825375-8 (Version None)
Quarter: 2008Q3

REPORT INFORMATION
  Report Type: 
  Country: None (occurrence: None)
  Receive Date: 20080725
  Receipt Date: 20080725
  Transmission Date: 20090109
  Serious: Yes (Hospitalization, Disabling)
  Sender: FDA-Public Use
  Company Number: None

PATIENT
  Age: 59 Year
  Sex: Female
  Weight: 61.2356 kg

DRUGS (1)
  1. PREDNISONE TAB [Suspect]
     Indication: PSORIATIC ARTHROPATHY
     Dosage: MAINTENANCE = 5 MG DAILY PO
     Route: 048

REACTIONS (2)
  - FEMUR FRACTURE [None]
  - FRACTURE DISPLACEMENT [None]
